FAERS Safety Report 9411607 (Version 1)
Quarter: 2013Q3

REPORT INFORMATION
  Report Type: Spontaneous
  Country: JP (occurrence: JP)
  Receive Date: 20130722
  Receipt Date: 20130722
  Transmission Date: 20140515
  Serious: Yes (Other)
  Sender: FDA-Public Use
  Company Number: JP-009507513-1307JPN007118

PATIENT
  Age: 82 Year
  Sex: Female

DRUGS (1)
  1. FOSAMAC TABLETS 35MG [Suspect]
     Indication: FRACTURE
     Dosage: 35 MG, ONCE A WEEK
     Route: 048

REACTIONS (1)
  - Hypoacusis [Not Recovered/Not Resolved]
